FAERS Safety Report 18136531 (Version 2)
Quarter: 2020Q3

REPORT INFORMATION
  Report Type: Spontaneous
  Country: TW (occurrence: TW)
  Receive Date: 20200811
  Receipt Date: 20200816
  Transmission Date: 20201103
  Serious: No
  Sender: FDA-Public Use
  Company Number: NVSC2020TW218333

PATIENT
  Sex: Male

DRUGS (1)
  1. CURAM [Suspect]
     Active Substance: AMOXICILLIN\CLAVULANATE POTASSIUM
     Indication: PROSTATITIS
     Dosage: 1000 MG, BID
     Route: 048
     Dates: start: 201912

REACTIONS (2)
  - Inflammation [Unknown]
  - Benign prostatic hyperplasia [Unknown]
